FAERS Safety Report 9346090 (Version 2)
Quarter: 2013Q3

REPORT INFORMATION
  Report Type: Spontaneous
  Country: JP (occurrence: JP)
  Receive Date: 20130613
  Receipt Date: 20130722
  Transmission Date: 20140515
  Serious: No
  Sender: FDA-Public Use
  Company Number: JP-BRISTOL-MYERS SQUIBB COMPANY-18999946

PATIENT
  Sex: Male

DRUGS (2)
  1. METGLUCO [Suspect]
     Indication: DIABETES MELLITUS
     Route: 048
  2. VILDAGLIPTIN [Concomitant]
     Route: 048

REACTIONS (2)
  - Asthenia [Recovered/Resolved]
  - Hypoglycaemia [Recovered/Resolved]
